FAERS Safety Report 5199027-4 (Version None)
Quarter: 2006Q4

REPORT INFORMATION
  Report Type: 
  Country: None (occurrence: None)
  Receive Date: 20061016
  Receipt Date: 20060616
  Transmission Date: 20070319
  Serious: No
  Sender: FDA-Public Use
  Company Number: 2006SP002446

PATIENT
  Age: 46 Year
  Sex: Male
  Weight: 64.6376 kg

DRUGS (5)
  1. LUNESTA [Suspect]
     Indication: INSOMNIA
     Dosage: 3 MG; HS; ORAL
     Route: 048
     Dates: start: 20060101
  2. LUNESTA [Suspect]
     Dosage: 6 MG; PRN; ORAL
     Route: 048
     Dates: start: 20060101
  3. MORPHINE [Concomitant]
  4. HYDROCHLOROTHIAZIDE [Concomitant]
  5. VITAMIN CAP [Concomitant]

REACTIONS (1)
  - MIDDLE INSOMNIA [None]
